FAERS Safety Report 8875230 (Version 2)
Quarter: 2015Q3

REPORT INFORMATION
  Report Type: Report from Study
  Country: US (occurrence: US)
  Receive Date: 20121023
  Receipt Date: 20150904
  Transmission Date: 20151125
  Serious: Yes (Other)
  Sender: FDA-Public Use
  Company Number: US-ROCHE-1132967

PATIENT
  Sex: Female

DRUGS (1)
  1. RAPTIVA [Suspect]
     Active Substance: EFALIZUMAB
     Indication: DERMATITIS ATOPIC
     Dosage: CONDITIONING DOSE 0.4 ML
     Route: 065

REACTIONS (1)
  - Pruritus [Unknown]
